FAERS Safety Report 15878709 (Version 1)
Quarter: 2019Q1

REPORT INFORMATION
  Report Type: Spontaneous
  Country: US (occurrence: US)
  Receive Date: 20190128
  Receipt Date: 20190128
  Transmission Date: 20190417
  Serious: No
  Sender: FDA-Public Use
  Company Number: US-PFIZER INC-2019031375

PATIENT
  Age: 89 Year
  Sex: Female
  Weight: 56 kg

DRUGS (3)
  1. GLIPIZIDE. [Concomitant]
     Active Substance: GLIPIZIDE
     Indication: DIABETES MELLITUS
     Dosage: 5 MG, 2X/DAY (5 MG IN THE MORNING AND 5 MG AT NIGHT)
     Route: 048
     Dates: start: 1992
  2. AMLODIPINE BESILATE [Suspect]
     Active Substance: AMLODIPINE BESYLATE
     Indication: BLOOD PRESSURE ABNORMAL
     Dosage: 5 MG, 2X/DAY (5 MG AT MORNING AND 5 AT NIGHT)
     Route: 048
  3. DIOVAN [Concomitant]
     Active Substance: VALSARTAN
     Indication: BLOOD PRESSURE ABNORMAL
     Dosage: 80 MG, 2X/DAY (80 MG IN THE MORNING AND 80 MG AT NIGHT)
     Route: 048

REACTIONS (10)
  - Joint swelling [Not Recovered/Not Resolved]
  - Muscle spasms [Not Recovered/Not Resolved]
  - Product use issue [Unknown]
  - Insomnia [Not Recovered/Not Resolved]
  - Dizziness postural [Unknown]
  - Dyskinesia [Unknown]
  - Hypoacusis [Unknown]
  - Vertigo [Recovered/Resolved]
  - Peripheral swelling [Not Recovered/Not Resolved]
  - Nocturia [Unknown]

NARRATIVE: CASE EVENT DATE: 2018
